FAERS Safety Report 8392121-6 (Version None)
Quarter: 2012Q2

REPORT INFORMATION
  Report Type: 
  Country: None (occurrence: None)
  Receive Date: 20120529
  Receipt Date: 20120522
  Transmission Date: 20120825
  Serious: Yes (Hospitalization)
  Sender: FDA-Public Use
  Company Number: GB-ROCHE-788414

PATIENT
  Sex: Female
  Weight: 93 kg

DRUGS (4)
  1. HERCEPTIN [Suspect]
     Indication: BREAST CANCER
     Dosage: DOSE HELD.
     Route: 042
  2. DOCETAXEL [Suspect]
     Indication: BREAST CANCER
     Dosage: DOSE DECREASED,
     Route: 042
  3. DOCETAXEL [Suspect]
     Dosage: DOSE DECREASED,LAST DOSE ON 29 JULY 2011
     Route: 042
  4. HERCEPTIN [Suspect]
     Dosage: LAST DOSE PRIOR TO SAE: 29 JULY 2011
     Route: 042

REACTIONS (3)
  - NEUTROPENIA [None]
  - DIARRHOEA [None]
  - NEUTROPENIC SEPSIS [None]
